FAERS Safety Report 9053913 (Version 1)
Quarter: 2013Q1

REPORT INFORMATION
  Report Type: Spontaneous
  Country: US (occurrence: None)
  Receive Date: 20130201
  Receipt Date: 20130201
  Transmission Date: 20140127
  Serious: Yes (Hospitalization, Disabling)
  Sender: FDA-Public Use
  Company Number: None

PATIENT
  Age: 59 Year
  Sex: Female
  Weight: 58.97 kg

DRUGS (1)
  1. LEVOFLOXACIN [Suspect]
     Indication: BLOOD COUNT ABNORMAL
     Dosage: 1 TABLET DAILY MOUTH
     Route: 048
     Dates: start: 20120602

REACTIONS (6)
  - Arthralgia [None]
  - Pain in extremity [None]
  - Pain in extremity [None]
  - Asthenia [None]
  - Paraesthesia [None]
  - Abasia [None]
